FAERS Safety Report 16307725 (Version 1)
Quarter: 2019Q2

REPORT INFORMATION
  Report Type: Spontaneous
  Country: DE (occurrence: DE)
  Receive Date: 20190514
  Receipt Date: 20190514
  Transmission Date: 20190711
  Serious: Yes (Hospitalization, Other)
  Sender: FDA-Public Use
  Company Number: DE-SUN PHARMACEUTICAL INDUSTRIES LTD-2019RR-207697

PATIENT
  Age: 53 Year
  Sex: Male
  Weight: 110 kg

DRUGS (1)
  1. PANTOPRAZOL BASICS 40 MG MAGENSAFTRESISTENTE  TABLETTEN [Suspect]
     Active Substance: PANTOPRAZOLE SODIUM
     Indication: DYSPEPSIA
     Dosage: 1X1, NUR EINMAL GENOMMEN ; IN TOTAL
     Route: 048

REACTIONS (6)
  - Urticaria [Recovered/Resolved]
  - Loss of consciousness [Recovered/Resolved]
  - Muscle spasms [Recovered/Resolved]
  - Pruritus [Recovered/Resolved]
  - Blood pressure increased [Recovered/Resolved]
  - Rash pustular [Recovered/Resolved]

NARRATIVE: CASE EVENT DATE: 20190301
